FAERS Safety Report 9255830 (Version 4)
Quarter: 2014Q3

REPORT INFORMATION
  Report Type: Report from Study
  Country: AU (occurrence: AU)
  Receive Date: 20130425
  Receipt Date: 20140723
  Transmission Date: 20150326
  Serious: Yes (Hospitalization)
  Sender: FDA-Public Use
  Company Number: AU-AMGEN-AUSCT2013028411

PATIENT
  Age: 71 Year
  Sex: Male

DRUGS (6)
  1. GEMCITABINE [Concomitant]
     Active Substance: GEMCITABINE\GEMCITABINE HYDROCHLORIDE
     Indication: BILE DUCT CANCER
     Dosage: 1000 MG/M2, UNK
  2. MICARDIS PLUS [Concomitant]
     Active Substance: HYDROCHLOROTHIAZIDE\TELMISARTAN
     Dosage: 20 MG, QD
     Route: 048
     Dates: start: 2008
  3. DOXYCYCLINE. [Concomitant]
     Active Substance: DOXYCYCLINE
     Dosage: 100 MG, BID
     Route: 048
     Dates: start: 20130405
  4. PANITUMUMAB [Suspect]
     Active Substance: PANITUMUMAB
     Indication: BILE DUCT CANCER
     Dosage: 9 MG/KG, Q3WK
     Route: 042
     Dates: start: 20130405
  5. MINAX [Concomitant]
     Active Substance: METAMIZOLE
     Dosage: 100 MG, BID
     Route: 048
     Dates: start: 2008
  6. CISPLATIN. [Concomitant]
     Active Substance: CISPLATIN
     Indication: BILE DUCT CANCER
     Dosage: 25 MG/M2, UNK

REACTIONS (3)
  - Colitis [Recovered/Resolved]
  - Gastroenteritis [Recovered/Resolved]
  - Thrombocytopenia [Recovered/Resolved]

NARRATIVE: CASE EVENT DATE: 20130415
